FAERS Safety Report 21362130 (Version 2)
Quarter: 2022Q3

REPORT INFORMATION
  Report Type: Report from Study
  Country: US (occurrence: US)
  Receive Date: 20220922
  Receipt Date: 20220930
  Transmission Date: 20221027
  Serious: No
  Sender: FDA-Public Use
  Company Number: US-ABBVIE-4127184

PATIENT
  Sex: Female

DRUGS (1)
  1. HUMIRA [Suspect]
     Active Substance: ADALIMUMAB
     Indication: Colitis ulcerative
     Dosage: CITRATE  FREE
     Route: 058

REACTIONS (3)
  - Irritable bowel syndrome [Recovering/Resolving]
  - Colitis ulcerative [Unknown]
  - Therapeutic product effect incomplete [Unknown]
